FAERS Safety Report 5888144-9 (Version None)
Quarter: 2008Q3

REPORT INFORMATION
  Report Type: 
  Country: None (occurrence: None)
  Receive Date: 20080918
  Receipt Date: 20080910
  Transmission Date: 20090109
  Serious: Yes (Other)
  Sender: FDA-Public Use
  Company Number: NO-ASTRAZENECA-2008SE04314

PATIENT
  Sex: Female

DRUGS (1)
  1. SELO-ZOK [Suspect]
     Indication: ARRHYTHMIA

REACTIONS (2)
  - TREMOR [None]
  - VISUAL IMPAIRMENT [None]
